FAERS Safety Report 20532649 (Version 1)
Quarter: 2022Q1

REPORT INFORMATION
  Report Type: Report from Study
  Country: AR (occurrence: AR)
  Receive Date: 20220301
  Receipt Date: 20220301
  Transmission Date: 20220423
  Serious: Yes (Hospitalization, Other)
  Sender: FDA-Public Use
  Company Number: AR-NOVARTISPH-NVSC2021AR165791

PATIENT
  Age: 54 Year
  Sex: Female

DRUGS (3)
  1. AFINITOR [Suspect]
     Active Substance: EVEROLIMUS
     Indication: Renal cancer
     Dosage: 10 MG, QD
     Route: 048
     Dates: start: 20210520
  2. AFINITOR [Suspect]
     Active Substance: EVEROLIMUS
     Dosage: 5 MG, QD
     Route: 048
     Dates: start: 20210520
  3. LENVATINIB [Suspect]
     Active Substance: LENVATINIB
     Indication: Product used for unknown indication
     Dosage: UNK
     Route: 065

REACTIONS (12)
  - Bacterial infection [Unknown]
  - Urinary tract infection [Unknown]
  - Pyrexia [Unknown]
  - Colonic fistula [Unknown]
  - Urethral fistula [Unknown]
  - Fear [Unknown]
  - Anaemia [Unknown]
  - Hypertension [Unknown]
  - Blood cholesterol increased [Unknown]
  - Lipids increased [Unknown]
  - Wrong technique in product usage process [Unknown]
  - Product availability issue [Unknown]

NARRATIVE: CASE EVENT DATE: 20210802
